FAERS Safety Report 10100879 (Version 2)
Quarter: 2014Q2

REPORT INFORMATION
  Report Type: Spontaneous
  Country: JP (occurrence: JP)
  Receive Date: 20140423
  Receipt Date: 20140620
  Transmission Date: 20141212
  Serious: Yes (Other)
  Sender: FDA-Public Use
  Company Number: JP-ALLERGAN-1408099US

PATIENT
  Age: 49 Year
  Sex: Male

DRUGS (8)
  1. BOTOX [Suspect]
     Indication: MUSCLE SPASMS
     Dosage: 300 UNITS, SINGLE
     Route: 030
     Dates: start: 20130725, end: 20130725
  2. BOTOX [Suspect]
     Dosage: 300 UNITS, SINGLE
     Route: 030
     Dates: start: 20131107, end: 20131107
  3. BOTOX [Suspect]
     Dosage: 300 UNITS, SINGLE
     Route: 030
     Dates: start: 20140213, end: 20140213
  4. LAMICTAL [Suspect]
     Indication: PRODUCT USED FOR UNKNOWN INDICATION
     Route: 048
  5. EPIRENAT [Concomitant]
     Route: 048
  6. E KEPPRA [Concomitant]
     Route: 048
  7. UNKNOWN [Concomitant]
     Dosage: 15 MG, TID
     Route: 048
  8. MAGMITT [Concomitant]
     Dosage: 330 MG, TID
     Route: 048

REACTIONS (6)
  - Loss of consciousness [Recovered/Resolved]
  - Loss of consciousness [Recovered/Resolved]
  - Convulsion [Recovered/Resolved]
  - Convulsion [Recovered/Resolved]
  - Drug eruption [Recovered/Resolved]
  - Pyrexia [Recovered/Resolved]
